FAERS Safety Report 15321459 (Version 1)
Quarter: 2018Q3

REPORT INFORMATION
  Report Type: Spontaneous
  Country: US (occurrence: US)
  Receive Date: 20180821
  Receipt Date: 20180821
  Transmission Date: 20181010
  Serious: Yes (Other)
  Sender: FDA-Public Use
  Company Number: None

PATIENT
  Age: 75 Year
  Sex: Male
  Weight: 84.96 kg

DRUGS (10)
  1. OMEPRAZOLE 20MG EC CAP [Concomitant]
  2. OXYCODONE HCL 15MG IR TAB [Concomitant]
  3. PSYLLIUM SF ORAL PWD [Concomitant]
  4. TAMSULOSIN HCL 0.4MG CAP [Concomitant]
  5. VIEKIRA PAK [Suspect]
     Active Substance: DASABUVIR\OMBITASVIR\PARITAPREVIR\RITONAVIR
  6. FUROSEMIDE 20MG TAB [Concomitant]
  7. MULTIVITAMIN/MINERALS CAP/TAB [Concomitant]
  8. ATENOLOL 50MG TAB [Concomitant]
  9. FERROUS GLUCONATE 325MG TAB [Concomitant]
  10. GABAPENTIN 600MG TAB [Concomitant]

REACTIONS (4)
  - Therapy change [None]
  - Haemoglobin decreased [None]
  - Anaemia [None]
  - Liver function test abnormal [None]
